FAERS Safety Report 9640298 (Version 1)
Quarter: 2013Q4

REPORT INFORMATION
  Report Type: Spontaneous
  Country: US (occurrence: US)
  Receive Date: 20131023
  Receipt Date: 20131023
  Transmission Date: 20140711
  Serious: Yes (Other)
  Sender: FDA-Public Use
  Company Number: US-BAYER-2013-122652

PATIENT
  Sex: 0

DRUGS (1)
  1. NEXAVAR [Suspect]
     Dosage: 400 MG, BID
     Dates: start: 201309

REACTIONS (1)
  - Hepatotoxicity [None]
